FAERS Safety Report 17585942 (Version 1)
Quarter: 2020Q1

REPORT INFORMATION
  Report Type: Spontaneous
  Country: US (occurrence: US)
  Receive Date: 20200326
  Receipt Date: 20200326
  Transmission Date: 20200409
  Serious: Yes (Death)
  Sender: FDA-Public Use
  Company Number: US-AMNEAL PHARMACEUTICALS-2020-AMRX-00065

PATIENT
  Age: 88 Year
  Sex: Male

DRUGS (3)
  1. RYTARY [Suspect]
     Active Substance: CARBIDOPA\LEVODOPA
     Indication: PARKINSON^S DISEASE
     Dosage: 1 CAPSULES, QID
     Route: 048
  2. RYTARY [Suspect]
     Active Substance: CARBIDOPA\LEVODOPA
     Dosage: UNK, HIGHER DOSE
     Route: 048
  3. RYTARY [Suspect]
     Active Substance: CARBIDOPA\LEVODOPA
     Dosage: 36.25MG/145MG AND 48.75MG/195MG
     Route: 048

REACTIONS (6)
  - Drug intolerance [Unknown]
  - Disorientation [Not Recovered/Not Resolved]
  - Fall [Fatal]
  - Tremor [Not Recovered/Not Resolved]
  - Transient ischaemic attack [Fatal]
  - Dizziness [Recovered/Resolved]

NARRATIVE: CASE EVENT DATE: 20200301
